FAERS Safety Report 4972095-8 (Version None)
Quarter: 2006Q2

REPORT INFORMATION
  Report Type: 
  Country: None (occurrence: None)
  Receive Date: 20060412
  Receipt Date: 20060412
  Transmission Date: 20061013
  Serious: Yes (Disabling)
  Sender: FDA-Public Use
  Company Number: None

PATIENT
  Sex: Female
  Weight: 58.9676 kg

DRUGS (2)
  1. BUFFER SALINE SOLUTION [Suspect]
     Indication: CORRECTIVE LENS USER
     Dates: start: 20060316, end: 20060317
  2. SALINE SOLUTION [Concomitant]

REACTIONS (5)
  - CONJUNCTIVITIS ALLERGIC [None]
  - CORRECTIVE LENS USER [None]
  - DRUG INEFFECTIVE [None]
  - IMPAIRED WORK ABILITY [None]
  - VISION BLURRED [None]
